FAERS Safety Report 22007722 (Version 1)
Quarter: 2023Q1

REPORT INFORMATION
  Report Type: Spontaneous
  Country: DE (occurrence: DE)
  Receive Date: 20230218
  Receipt Date: 20230218
  Transmission Date: 20230418
  Serious: Yes (Hospitalization)
  Sender: FDA-Public Use
  Company Number: DE-Eisai Medical Research-EC-2022-130324

PATIENT
  Age: 70 Year
  Sex: Female
  Weight: 54 kg

DRUGS (8)
  1. CEFTRIAXONE [Interacting]
     Active Substance: CEFTRIAXONE
     Indication: Prophylaxis
     Dosage: 2 G (FREQUENCY UNKNOWN)
     Route: 042
     Dates: start: 20221222, end: 20221228
  2. LENVATINIB [Interacting]
     Active Substance: LENVATINIB
     Indication: Hepatocellular carcinoma
     Dosage: 8 MG, QD (ONCE A DAY)
     Route: 048
     Dates: start: 20221206, end: 20221216
  3. TERLIPRESSIN [Interacting]
     Active Substance: TERLIPRESSIN
     Indication: Infusion
     Dosage: UNK (DOSE AND FREQUENCY UNKNOWN)
     Route: 065
     Dates: start: 20221222, end: 20221225
  4. NOVALGIN [Concomitant]
     Indication: Pain
     Dosage: 500 MG
     Route: 048
     Dates: start: 20221112
  5. APIXABAN [Concomitant]
     Active Substance: APIXABAN
     Indication: Prophylaxis
     Dosage: 2.5 MG
     Route: 065
     Dates: start: 20221112
  6. PANTOPRAZOLE SODIUM [Concomitant]
     Active Substance: PANTOPRAZOLE SODIUM
     Indication: Prophylaxis
     Dosage: 80 MG
     Route: 048
     Dates: start: 20221112
  7. SPIRONOLACTONE [Concomitant]
     Active Substance: SPIRONOLACTONE
     Indication: Ascites
     Dosage: 25 MG
     Route: 065
     Dates: start: 20221201
  8. THIAMINE [Concomitant]
     Active Substance: THIAMINE
     Indication: Nervous system disorder
     Dosage: 200 MG
     Route: 065
     Dates: start: 20221112

REACTIONS (2)
  - Drug interaction [Unknown]
  - Hepatic encephalopathy [Recovered/Resolved with Sequelae]
